FAERS Safety Report 14273579 (Version 1)
Quarter: 2017Q4

REPORT INFORMATION
  Report Type: Spontaneous
  Country: US (occurrence: US)
  Receive Date: 20171212
  Receipt Date: 20171212
  Transmission Date: 20180321
  Serious: Yes (Death)
  Sender: FDA-Public Use
  Company Number: None

PATIENT
  Age: 87 Year
  Sex: Female
  Weight: 65.1 kg

DRUGS (1)
  1. AMIODARONE [Suspect]
     Active Substance: AMIODARONE

REACTIONS (4)
  - Dyspnoea [None]
  - Pneumonitis [None]
  - Hepatic failure [None]
  - Renal failure [None]

NARRATIVE: CASE EVENT DATE: 20170730
